FAERS Safety Report 9551810 (Version 1)
Quarter: 2013Q3

REPORT INFORMATION
  Report Type: Spontaneous
  Country: US (occurrence: None)
  Receive Date: 20130724
  Receipt Date: 20130724
  Transmission Date: 20140515
  Serious: Yes (Hospitalization)
  Sender: FDA-Public Use
  Company Number: PHEH2012US013428

PATIENT
  Sex: Male

DRUGS (1)
  1. GLEEVEC (IMATINIB) UNKNOWN [Suspect]
     Indication: GASTRIC CANCER
     Route: 048

REACTIONS (5)
  - Metastases to gastrointestinal tract [None]
  - Metastases to liver [None]
  - Intestinal haemorrhage [None]
  - Neoplasm [None]
  - Malignant neoplasm progression [None]
